FAERS Safety Report 4457910-9 (Version None)
Quarter: 2004Q3

REPORT INFORMATION
  Report Type: 
  Country: None (occurrence: None)
  Receive Date: 20040924
  Receipt Date: 20040914
  Transmission Date: 20050211
  Serious: Yes (Other)
  Sender: FDA-Public Use
  Company Number: US-JNJFOC-20040601323

PATIENT
  Sex: Female
  Weight: 44 kg

DRUGS (21)
  1. DURAGESIC [Suspect]
     Route: 062
  2. DURAGESIC [Suspect]
     Route: 062
  3. DURAGESIC [Suspect]
     Route: 062
  4. DURAGESIC [Suspect]
     Route: 062
  5. DURAGESIC [Suspect]
     Route: 062
  6. LASIX [Concomitant]
  7. COUMADIN [Concomitant]
  8. PREVACID [Concomitant]
  9. PROMETHAZINE [Concomitant]
  10. ACTOS [Concomitant]
  11. GOLD SHOTS [Concomitant]
  12. B-12 [Concomitant]
  13. ELAVIL [Concomitant]
  14. POTASSIUM CHLORIDE [Concomitant]
  15. LEVOXYL [Concomitant]
  16. PERPHENAZINE [Concomitant]
  17. AMYTRIPTYLINE [Concomitant]
  18. NAPROXEN [Concomitant]
  19. PROTONIX [Concomitant]
  20. CHLORZOXAZONE [Concomitant]
  21. VITAMIN K TAB [Concomitant]

REACTIONS (33)
  - ABDOMINAL PAIN [None]
  - ABDOMINAL PAIN UPPER [None]
  - ANOREXIA [None]
  - ANXIETY [None]
  - ARTHRALGIA [None]
  - BACK PAIN [None]
  - CONTUSION [None]
  - COUGH [None]
  - DIARRHOEA [None]
  - DRUG WITHDRAWAL SYNDROME [None]
  - DYSKINESIA [None]
  - DYSPNOEA [None]
  - EXCORIATION [None]
  - FATIGUE [None]
  - FEELING JITTERY [None]
  - FORMICATION [None]
  - HAEMATEMESIS [None]
  - HEADACHE [None]
  - INFLUENZA [None]
  - INJURY [None]
  - INSOMNIA [None]
  - INTERNATIONAL NORMALISED RATIO INCREASED [None]
  - JOINT RANGE OF MOTION DECREASED [None]
  - LUNG DISORDER [None]
  - MALAISE [None]
  - MEDICATION ERROR [None]
  - MOUTH ULCERATION [None]
  - NAUSEA [None]
  - NECK PAIN [None]
  - PAIN IN EXTREMITY [None]
  - PROTHROMBIN TIME PROLONGED [None]
  - ROAD TRAFFIC ACCIDENT [None]
  - WEIGHT DECREASED [None]
